FAERS Safety Report 9426693 (Version 3)
Quarter: 2013Q3

REPORT INFORMATION
  Report Type: Spontaneous
  Country: GB (occurrence: GB)
  Receive Date: 20130730
  Receipt Date: 20130821
  Transmission Date: 20140515
  Serious: Yes (Other)
  Sender: FDA-Public Use
  Company Number: GB-AMGEN-GBRSP2013052333

PATIENT
  Age: 52 Year
  Sex: Female

DRUGS (3)
  1. NEULASTA [Suspect]
     Indication: BREAST CANCER
     Dosage: UNK UNK, AFTER CHEMO
     Route: 065
  2. PACLITAXEL [Concomitant]
     Indication: BREAST CANCER
     Dosage: UNK UNK, WEEKLY
  3. AVASTIN                            /01555201/ [Concomitant]
     Indication: BREAST CANCER
     Dosage: UNK UNK, THREE WEEKLY

REACTIONS (8)
  - Bedridden [Not Recovered/Not Resolved]
  - Asthenia [Unknown]
  - Mobility decreased [Unknown]
  - Inappropriate schedule of drug administration [Unknown]
  - Pain [Not Recovered/Not Resolved]
  - Malaise [Not Recovered/Not Resolved]
  - Pain in extremity [Unknown]
  - Stomatitis [Unknown]
